FAERS Safety Report 5510937-8 (Version None)
Quarter: 2007Q4

REPORT INFORMATION
  Report Type: 
  Country: None (occurrence: None)
  Receive Date: 20071106
  Receipt Date: 20071106
  Transmission Date: 20080405
  Serious: No
  Sender: FDA-Public Use
  Company Number: None

PATIENT
  Age: 63 Year
  Sex: Female

DRUGS (2)
  1. ADRIAMYCIN PFS [Suspect]
     Indication: BREAST CANCER
     Dosage: 100 IV
     Route: 042
     Dates: start: 20000913, end: 20001107
  2. CYTOXAN [Suspect]

REACTIONS (1)
  - CARDIOMYOPATHY [None]
